FAERS Safety Report 14305969 (Version 1)
Quarter: 2017Q4

REPORT INFORMATION
  Report Type: Spontaneous
  Country: US (occurrence: US)
  Receive Date: 20171219
  Receipt Date: 20171219
  Transmission Date: 20180321
  Serious: No
  Sender: FDA-Public Use
  Company Number: US-PFIZER INC-2017534733

PATIENT
  Age: 68 Year
  Sex: Female
  Weight: 43.9 kg

DRUGS (2)
  1. FLECTOR [Suspect]
     Active Substance: DICLOFENAC EPOLAMINE
     Indication: PAIN
     Dosage: UNK
  2. AMITRIPTYLINE [Concomitant]
     Active Substance: AMITRIPTYLINE
     Indication: BLOOD PRESSURE ABNORMAL
     Dosage: 100 MG, UNK

REACTIONS (1)
  - Drug ineffective for unapproved indication [Unknown]
